FAERS Safety Report 9726080 (Version 2)
Quarter: 2014Q1

REPORT INFORMATION
  Report Type: Report from Study
  Country: ES (occurrence: ES)
  Receive Date: 20131203
  Receipt Date: 20140122
  Transmission Date: 20141002
  Serious: Yes (Hospitalization, Disabling)
  Sender: FDA-Public Use
  Company Number: ES-BAYER-2013-145947

PATIENT
  Age: 54 Year
  Sex: Male

DRUGS (1)
  1. REGORAFENIB [Suspect]
     Indication: COLON CANCER

REACTIONS (2)
  - Deep vein thrombosis [None]
  - Lower limb fracture [None]
